FAERS Safety Report 16773701 (Version 9)
Quarter: 2023Q4

REPORT INFORMATION
  Report Type: Report from Study
  Country: JP (occurrence: JP)
  Receive Date: 20190904
  Receipt Date: 20231206
  Transmission Date: 20240109
  Serious: Yes (Life-Threatening, Hospitalization, Other)
  Sender: FDA-Public Use
  Company Number: JP-ALEXION-A201912806

PATIENT
  Age: 40 Year
  Sex: Female
  Weight: 49 kg

DRUGS (3)
  1. SOLIRIS [Suspect]
     Active Substance: ECULIZUMAB
     Indication: Paroxysmal nocturnal haemoglobinuria
     Dosage: 600 MILLIGRAM, QW
     Route: 042
     Dates: start: 20171102, end: 20171124
  2. SOLIRIS [Suspect]
     Active Substance: ECULIZUMAB
     Dosage: 900 MILLIGRAM, Q2W
     Route: 042
     Dates: start: 20171201
  3. CEFTRIAXONE [Suspect]
     Active Substance: CEFTRIAXONE\CEFTRIAXONE SODIUM
     Indication: Meningococcal infection
     Dosage: 2 GRAM, SINGLE
     Route: 042
     Dates: start: 20190819

REACTIONS (3)
  - Bacteraemia [Recovered/Resolved]
  - Gonococcal infection [Recovered/Resolved]
  - Drug eruption [Recovered/Resolved]

NARRATIVE: CASE EVENT DATE: 20190817
